FAERS Safety Report 6832356-4 (Version None)
Quarter: 2010Q3

REPORT INFORMATION
  Report Type: 
  Country: None (occurrence: None)
  Receive Date: 20100707
  Receipt Date: 20100623
  Transmission Date: 20110219
  Serious: Yes (Hospitalization)
  Sender: FDA-Public Use
  Company Number: 7008905

PATIENT
  Age: 52 Year
  Sex: Female

DRUGS (9)
  1. REBIF [Suspect]
     Indication: RELAPSING-REMITTING MULTIPLE SCLEROSIS
     Dosage: 44 MCG, 3 IN 1 WK, SUBCUTANEOUS
     Route: 048
     Dates: start: 20070604
  2. PURAN T4 (LEVOTHROXINE SODIUM) [Concomitant]
  3. FENITOIN (PHENYTOIN) [Concomitant]
  4. WARFARIN SODIUM [Concomitant]
  5. METFORMIN HCL [Concomitant]
  6. ASPIRIN [Concomitant]
  7. ATENOLOL [Concomitant]
  8. OMEPRAZOLE [Concomitant]
  9. FLUOXETINE [Concomitant]

REACTIONS (1)
  - HYPOAESTHESIA [None]
